FAERS Safety Report 19054186 (Version 3)
Quarter: 2025Q2

REPORT INFORMATION
  Report Type: Spontaneous
  Country: IT (occurrence: IT)
  Receive Date: 20210325
  Receipt Date: 20250626
  Transmission Date: 20250716
  Serious: Yes (Death, Other)
  Sender: AUROBINDO
  Company Number: IT-PFIZER INC-2021250507

PATIENT
  Sex: Female
  Weight: 0.93 kg

DRUGS (2)
  1. MEROPENEM [Suspect]
     Active Substance: MEROPENEM
     Indication: Sepsis neonatal
     Route: 065
  2. RANITIDINE [Concomitant]
     Active Substance: RANITIDINE
     Indication: Gastrooesophageal reflux disease
     Route: 065

REACTIONS (5)
  - Disseminated intravascular coagulation in newborn [Fatal]
  - Neonatal multi-organ failure [Fatal]
  - Disseminated intravascular coagulation [Fatal]
  - Drug ineffective [Fatal]
  - Sepsis neonatal [Fatal]
